FAERS Safety Report 7890330-3 (Version None)
Quarter: 2011Q4

REPORT INFORMATION
  Report Type: 
  Country: None (occurrence: None)
  Receive Date: 20111103
  Receipt Date: 20110804
  Transmission Date: 20120403
  Serious: No
  Sender: FDA-Public Use
  Company Number: US-AMGEN-USASP2011039955

PATIENT
  Age: 52 Year
  Sex: Female

DRUGS (1)
  1. ENBREL [Suspect]
     Indication: RHEUMATOID ARTHRITIS
     Dosage: 25 MG, 2 TIMES/WK
     Dates: start: 20071024

REACTIONS (9)
  - ASTHENIA [None]
  - ACNE [None]
  - INJECTION SITE PAIN [None]
  - BLOOD TESTOSTERONE DECREASED [None]
  - BLOOD OESTROGEN DECREASED [None]
  - ANAEMIA [None]
  - HOT FLUSH [None]
  - NASOPHARYNGITIS [None]
  - INSOMNIA [None]
